FAERS Safety Report 7279881-2 (Version None)
Quarter: 2011Q1

REPORT INFORMATION
  Report Type: 
  Country: None (occurrence: None)
  Receive Date: 20110208
  Receipt Date: 20110126
  Transmission Date: 20110831
  Serious: Yes (Hospitalization, Other)
  Sender: FDA-Public Use
  Company Number: ES-JNJFOC-20100503680

PATIENT
  Sex: Male

DRUGS (13)
  1. TACROLIMUS [Interacting]
     Indication: IMMUNOSUPPRESSION
     Route: 065
  2. ISENTRESS [Concomitant]
     Indication: HIV INFECTION
  3. TRUVADA [Concomitant]
     Route: 048
  4. FORTASEC [Concomitant]
  5. TRUVADA [Concomitant]
     Indication: HIV INFECTION
  6. TENOFOVIR [Concomitant]
  7. ATRIPLA [Concomitant]
     Indication: HIV INFECTION
  8. ATARAX [Concomitant]
  9. RALTEGRAVIR [Concomitant]
     Indication: HIV INFECTION
     Route: 048
  10. PANTOPRAZOL [Concomitant]
  11. INTELENCE [Suspect]
     Indication: HIV INFECTION
     Route: 065
  12. LORMETAZEPAM [Concomitant]
  13. LEXATIN [Concomitant]

REACTIONS (3)
  - RASH [None]
  - CHOLESTASIS [None]
  - DRUG INTERACTION [None]
